FAERS Safety Report 8397044 (Version 8)
Quarter: 2013Q4

REPORT INFORMATION
  Report Type: Spontaneous
  Country: US (occurrence: US)
  Receive Date: 20120209
  Receipt Date: 20131011
  Transmission Date: 20140711
  Serious: Yes (Other)
  Sender: FDA-Public Use
  Company Number: US-PFIZER INC-2012033344

PATIENT
  Age: 26 Year
  Sex: Female
  Weight: 128 kg

DRUGS (17)
  1. IBUPROFEN [Suspect]
     Indication: HEADACHE
     Route: 065
     Dates: start: 20080609
  2. LYRICA [Suspect]
     Indication: HEADACHE
     Dosage: UNK
     Route: 065
  3. TESSALON [Suspect]
     Indication: COUGH
     Dosage: UNK
     Route: 048
  4. TOPAMAX [Suspect]
     Indication: MIGRAINE
     Dosage: 100 MG, 2X/DAY
     Route: 048
     Dates: start: 2006
  5. TYLENOL WITH CODEINE [Suspect]
     Indication: HEADACHE
     Route: 048
  6. AXOTAL (OLD FORM) [Suspect]
     Route: 065
  7. COMPAZINE [Suspect]
     Indication: VOMITING
     Dosage: 10 MG, UNK
     Route: 065
  8. COMPAZINE [Suspect]
     Indication: NAUSEA
  9. ZOFRAN [Suspect]
     Route: 065
  10. ALBUTEROL [Suspect]
     Indication: ASTHMA
     Dosage: 3 ML, UNK
     Route: 065
  11. SYMBICORT [Suspect]
     Indication: ASTHMA
     Dosage: 2 PUFFS TWICE DAILY
     Route: 065
  12. EXCEDRIN MIGRAINE [Suspect]
     Indication: HEADACHE
     Route: 065
  13. AMBIEN [Suspect]
     Indication: FOETAL EXPOSURE DURING PREGNANCY
     Dosage: 10 MG, UNK
     Route: 065
  14. METHERGINE [Suspect]
     Dosage: UNK
     Route: 065
  15. FIORICET [Suspect]
     Dosage: UNK
     Route: 065
  16. PRENATAL VITAMINS [Concomitant]
     Indication: VITAMIN SUPPLEMENTATION
     Dosage: UNK
     Route: 065
  17. REPLIVA [Concomitant]
     Indication: PROPHYLAXIS
     Route: 065

REACTIONS (3)
  - Depression [Not Recovered/Not Resolved]
  - Weight decreased [Unknown]
  - Stress [Unknown]
